FAERS Safety Report 5473459-9 (Version None)
Quarter: 2007Q3

REPORT INFORMATION
  Report Type: 
  Country: None (occurrence: None)
  Receive Date: 20070828
  Receipt Date: 20070705
  Transmission Date: 20080115
  Serious: Yes (Other)
  Sender: FDA-Public Use
  Company Number: 2007046079

PATIENT

DRUGS (3)
  1. EXUBERA [Suspect]
  2. AVANDIA [Suspect]
  3. LANTUS [Suspect]

REACTIONS (1)
  - HYPOGLYCAEMIA [None]
